FAERS Safety Report 16477654 (Version 1)
Quarter: 2019Q2

REPORT INFORMATION
  Report Type: Spontaneous
  Country: US (occurrence: US)
  Receive Date: 20190626
  Receipt Date: 20190626
  Transmission Date: 20190711
  Serious: No
  Sender: FDA-Public Use
  Company Number: US-ASTRAZENECA-2019SE86900

PATIENT
  Age: 27165 Day
  Sex: Female
  Weight: 79.4 kg

DRUGS (1)
  1. BYDUREON BCISE [Suspect]
     Active Substance: EXENATIDE
     Indication: TYPE 2 DIABETES MELLITUS
     Route: 058
     Dates: start: 20190525

REACTIONS (6)
  - Injection site haemorrhage [Unknown]
  - Wrong technique in product usage process [Unknown]
  - Nausea [Recovered/Resolved]
  - Device leakage [Unknown]
  - Injection site discolouration [Unknown]
  - Injection site extravasation [Recovering/Resolving]

NARRATIVE: CASE EVENT DATE: 20190525
